FAERS Safety Report 7132579-3 (Version None)
Quarter: 2010Q4

REPORT INFORMATION
  Report Type: 
  Country: None (occurrence: None)
  Receive Date: 20101202
  Receipt Date: 20101124
  Transmission Date: 20110411
  Serious: Yes (Hospitalization)
  Sender: FDA-Public Use
  Company Number: US-AMGEN-USASP2010006413

PATIENT

DRUGS (1)
  1. ENBREL [Suspect]
     Indication: PSORIASIS
     Dates: start: 20060120

REACTIONS (5)
  - ASTHMA [None]
  - CARDIAC FAILURE CONGESTIVE [None]
  - FLUID RETENTION [None]
  - NASOPHARYNGITIS [None]
  - PNEUMONIA [None]
